FAERS Safety Report 12677140 (Version 1)
Quarter: 2016Q3

REPORT INFORMATION
  Report Type: Spontaneous
  Country: US (occurrence: US)
  Receive Date: 20160823
  Receipt Date: 20160823
  Transmission Date: 20161109
  Serious: No
  Sender: FDA-Public Use
  Company Number: US-TEVA-629139USA

PATIENT
  Sex: Female

DRUGS (1)
  1. VENLAFAXINE [Suspect]
     Active Substance: VENLAFAXINE HYDROCHLORIDE

REACTIONS (8)
  - Mood altered [Unknown]
  - Vertigo [Unknown]
  - Vision blurred [Unknown]
  - Nausea [Unknown]
  - Fatigue [Unknown]
  - Drug prescribing error [Unknown]
  - Headache [Unknown]
  - Paraesthesia [Unknown]
